FAERS Safety Report 9253942 (Version 1)
Quarter: 2013Q1

REPORT INFORMATION
  Report Type: Spontaneous
  Country: US (occurrence: None)
  Receive Date: 20121203
  Receipt Date: 20121203
  Transmission Date: 20140127
  Serious: Yes (Hospitalization, Other)
  Sender: FDA-Public Use
  Company Number: 2011SP050148

PATIENT
  Age: 23 Year
  Sex: Female
  Weight: 90.7 kg

DRUGS (2)
  1. NUVARING [Suspect]
     Indication: CONTRACEPTION
     Dosage: 1 DF, QM, VAGINAL
     Route: 067
     Dates: start: 20080428, end: 2009
  2. NUVARING [Suspect]
     Indication: MENSTRUAL CYCLE MANAGEMENT
     Dosage: 1 DF, QM, VAGINAL
     Route: 067
     Dates: start: 20080428, end: 2009

REACTIONS (6)
  - Pulmonary embolism [None]
  - Anxiety [None]
  - Renal cyst [None]
  - Coital bleeding [None]
  - Fatigue [None]
  - Dyspareunia [None]
